FAERS Safety Report 17507485 (Version 3)
Quarter: 2020Q1

REPORT INFORMATION
  Report Type: Spontaneous
  Country: US (occurrence: US)
  Receive Date: 20200306
  Receipt Date: 20200325
  Transmission Date: 20200409
  Serious: Yes (Other)
  Sender: FDA-Public Use
  Company Number: US-GLAXOSMITHKLINE-US2020036838

PATIENT
  Age: 55 Year
  Sex: Female

DRUGS (3)
  1. METHOTREXATE. [Suspect]
     Active Substance: METHOTREXATE
     Indication: PRODUCT USED FOR UNKNOWN INDICATION
     Dosage: UNK
     Route: 065
  2. NIFEDIPINE. [Suspect]
     Active Substance: NIFEDIPINE
     Indication: PRODUCT USED FOR UNKNOWN INDICATION
     Dosage: UNK
     Route: 065
  3. BENLYSTA [Suspect]
     Active Substance: BELIMUMAB
     Indication: SYSTEMIC LUPUS ERYTHEMATOSUS
     Dosage: ONCE A WEEK FOR A MONTH
     Route: 058
     Dates: start: 20200222

REACTIONS (10)
  - Bipolar disorder [Unknown]
  - Exposure via skin contact [Unknown]
  - Haemorrhage [Unknown]
  - Wrong technique in device usage process [Unknown]
  - Post-traumatic stress disorder [Unknown]
  - Accidental exposure to product [Unknown]
  - Brain injury [Unknown]
  - Anger [Unknown]
  - Headache [Unknown]
  - Application site haemorrhage [Unknown]

NARRATIVE: CASE EVENT DATE: 20200222
